FAERS Safety Report 19798087 (Version 1)
Quarter: 2021Q3

REPORT INFORMATION
  Report Type: Report from Study
  Country: AU (occurrence: AU)
  Receive Date: 20210907
  Receipt Date: 20210907
  Transmission Date: 20211014
  Serious: Yes (Hospitalization, Other)
  Sender: FDA-Public Use
  Company Number: AU-JNJFOC-20210901586

PATIENT
  Age: 50 Year
  Sex: Female

DRUGS (1)
  1. REMICADE [Suspect]
     Active Substance: INFLIXIMAB
     Indication: PSORIATIC ARTHROPATHY
     Route: 042
     Dates: start: 20210714

REACTIONS (10)
  - Musculoskeletal chest pain [Unknown]
  - Pyrexia [Recovered/Resolved]
  - Skin cancer [Unknown]
  - Road traffic accident [Unknown]
  - Vascular rupture [Unknown]
  - Diarrhoea [Unknown]
  - Nausea [Recovered/Resolved]
  - Pulmonary mass [Unknown]
  - Vomiting [Recovered/Resolved]
  - Inflammation of wound [Recovered/Resolved]

NARRATIVE: CASE EVENT DATE: 2021
